FAERS Safety Report 25245463 (Version 1)
Quarter: 2025Q2

REPORT INFORMATION
  Report Type: Spontaneous
  Country: US (occurrence: None)
  Receive Date: 20250426
  Receipt Date: 20250426
  Transmission Date: 20250717
  Serious: Yes (Disabling)
  Sender: FDA-CTU
  Company Number: None

PATIENT
  Age: 25 Year
  Sex: Female
  Weight: 54 kg

DRUGS (4)
  1. LEXAPRO [Suspect]
     Active Substance: ESCITALOPRAM OXALATE
     Indication: Depression
     Dosage: OTHER QUANTITY : 1 TABLET(S);?FREQUENCY : DAILY;?
     Route: 048
     Dates: start: 20230201, end: 20241001
  2. LEXAPRO [Suspect]
     Active Substance: ESCITALOPRAM OXALATE
     Indication: Anxiety
  3. UNSPECIFIED INGREDIENT [Concomitant]
     Active Substance: UNSPECIFIED INGREDIENT
  4. HERBALS [Concomitant]
     Active Substance: HERBALS

REACTIONS (4)
  - Sexual dysfunction [None]
  - Genital hypoaesthesia [None]
  - Genital hyperaesthesia [None]
  - Libido decreased [None]

NARRATIVE: CASE EVENT DATE: 20230601
